FAERS Safety Report 5342116-1 (Version None)
Quarter: 2007Q2

REPORT INFORMATION
  Report Type: 
  Country: None (occurrence: None)
  Receive Date: 20070416
  Receipt Date: 20070307
  Transmission Date: 20071010
  Serious: No
  Sender: FDA-Public Use
  Company Number: 2007SP000836

PATIENT
  Age: 79 Year
  Sex: Female
  Weight: 68.0396 kg

DRUGS (4)
  1. LUNESTA [Suspect]
     Indication: INSOMNIA
     Dosage: 3 MG;ORAL
     Route: 048
     Dates: start: 20061001, end: 20061001
  2. MEVACOR [Concomitant]
  3. TOPRAL [Concomitant]
  4. LOTRIAL [Concomitant]

REACTIONS (1)
  - DYSGEUSIA [None]
